FAERS Safety Report 22033708 (Version 2)
Quarter: 2023Q1

REPORT INFORMATION
  Report Type: Report from Study
  Country: CA (occurrence: CA)
  Receive Date: 20230224
  Receipt Date: 20230301
  Transmission Date: 20230418
  Serious: Yes (Hospitalization)
  Sender: FDA-Public Use
  Company Number: CA-LEO Pharma-349448

PATIENT
  Age: 92 Year
  Sex: Female

DRUGS (9)
  1. DEVICE [Suspect]
     Active Substance: DEVICE
     Indication: Dermatitis atopic
  2. TRALOKINUMAB [Suspect]
     Active Substance: TRALOKINUMAB
     Indication: Dermatitis atopic
     Dosage: LOADING DOSE GIVEN ONCE
     Route: 058
     Dates: start: 20221026
  3. TRALOKINUMAB [Suspect]
     Active Substance: TRALOKINUMAB
     Indication: Dermatitis atopic
     Dosage: LOADING DOSE GIVEN ONCE
     Route: 058
     Dates: start: 20221026
  4. TRALOKINUMAB [Suspect]
     Active Substance: TRALOKINUMAB
     Indication: Dermatitis atopic
     Dosage: LOADING DOSE GIVEN ONCE
     Route: 058
     Dates: start: 20221026
  5. TRALOKINUMAB [Suspect]
     Active Substance: TRALOKINUMAB
     Indication: Dermatitis atopic
     Dosage: LOADING DOSE GIVEN ONCE
     Route: 058
     Dates: start: 20221026
  6. TRALOKINUMAB [Suspect]
     Active Substance: TRALOKINUMAB
     Indication: Dermatitis atopic
     Dosage: MAINTENANCE DOSE
     Route: 058
  7. TRALOKINUMAB [Suspect]
     Active Substance: TRALOKINUMAB
     Indication: Dermatitis atopic
     Dosage: MAINTENANCE DOSE
     Route: 058
  8. TRALOKINUMAB [Suspect]
     Active Substance: TRALOKINUMAB
     Indication: Dermatitis atopic
     Dosage: MAINTENANCE DOSE
     Route: 058
  9. TRALOKINUMAB [Suspect]
     Active Substance: TRALOKINUMAB
     Indication: Dermatitis atopic
     Dosage: MAINTENANCE DOSE
     Route: 058

REACTIONS (3)
  - Diarrhoea [Unknown]
  - Drug ineffective [Unknown]
  - COVID-19 [Recovered/Resolved]
